FAERS Safety Report 5107765-4 (Version None)
Quarter: 2006Q3

REPORT INFORMATION
  Report Type: 
  Country: None (occurrence: None)
  Receive Date: 20060914
  Receipt Date: 20060830
  Transmission Date: 20061208
  Serious: Yes (Hospitalization)
  Sender: FDA-Public Use
  Company Number: 229681

PATIENT
  Age: 50 Year
  Sex: Female

DRUGS (2)
  1. HERCEPTIN [Suspect]
     Indication: BREAST CANCER
     Dosage: 106 MG, 1/WEEK, INTRAVENOUS
     Route: 042
     Dates: start: 20051026, end: 20060104
  2. TAXOTERE [Suspect]
     Indication: BREAST CANCER
     Dosage: 110 MG, INTRAVENOUS
     Route: 042
     Dates: start: 20051102, end: 20060104

REACTIONS (3)
  - BLOOD PH INCREASED [None]
  - DISEASE PROGRESSION [None]
  - RESPIRATORY FAILURE [None]
